FAERS Safety Report 11371489 (Version 1)
Quarter: 2015Q3

REPORT INFORMATION
  Report Type: Report from Study
  Country: US (occurrence: US)
  Receive Date: 20150812
  Receipt Date: 20150812
  Transmission Date: 20151125
  Serious: Yes (Hospitalization, Other)
  Sender: FDA-Public Use
  Company Number: US-GILEAD-2015-0166929

PATIENT
  Age: 56 Year
  Sex: Male

DRUGS (1)
  1. RANOLAZINE [Suspect]
     Active Substance: RANOLAZINE
     Indication: ANGINA PECTORIS
     Dosage: 500 MG, UNK
     Route: 048
     Dates: start: 20150210

REACTIONS (3)
  - Myocardial infarction [Unknown]
  - Therapy cessation [Unknown]
  - Chest pain [Unknown]

NARRATIVE: CASE EVENT DATE: 201504
